FAERS Safety Report 5450804-1 (Version None)
Quarter: 2007Q3

REPORT INFORMATION
  Report Type: 
  Country: None (occurrence: None)
  Receive Date: 20070803
  Receipt Date: 20070105
  Transmission Date: 20080115
  Serious: Yes (Hospitalization)
  Sender: FDA-Public Use
  Company Number: US-JNJFOC-20070101257

PATIENT
  Age: 37 Year
  Sex: Female
  Weight: 66.6788 kg

DRUGS (3)
  1. EXTRA STRENGTH TYLENOL [Suspect]
     Indication: DEPRESSION
     Dosage: 5000 MG, 1 IN 1 TOTAL
     Dates: start: 20061213, end: 20061213
  2. CYMBALTA [Concomitant]
  3. KLONOPIN [Concomitant]

REACTIONS (1)
  - INTENTIONAL OVERDOSE [None]
